FAERS Safety Report 6661774-2 (Version None)
Quarter: 2010Q1

REPORT INFORMATION
  Report Type: 
  Country: None (occurrence: None)
  Receive Date: 20100331
  Receipt Date: 20090623
  Transmission Date: 20100710
  Serious: Yes (Other)
  Sender: FDA-Public Use
  Company Number: US-BRISTOL-MYERS SQUIBB COMPANY-14668065

PATIENT
  Sex: Male

DRUGS (6)
  1. ERBITUX [Suspect]
     Indication: HEAD AND NECK CANCER
     Dosage: LOADING DOSE 732MG,RECEIVED PARTIAL DOSE.RESTARTED-17JUN09.DOSE OF 458MG INCREMENT OF 100MG GIVEN.
     Route: 042
     Dates: start: 20090611, end: 20090611
  2. DECADRON [Concomitant]
     Indication: PREMEDICATION
     Route: 042
  3. SOLU-MEDROL [Concomitant]
     Indication: PREMEDICATION
     Route: 042
  4. ZANTAC [Concomitant]
     Indication: PREMEDICATION
     Route: 042
  5. ALBUTEROL [Concomitant]
     Indication: PREMEDICATION
  6. BENADRYL [Concomitant]
     Indication: PREMEDICATION
     Route: 042

REACTIONS (1)
  - HYPERSENSITIVITY [None]
